FAERS Safety Report 11541593 (Version 1)
Quarter: 2015Q3

REPORT INFORMATION
  Report Type: Spontaneous
  Country: TR (occurrence: TR)
  Receive Date: 20150923
  Receipt Date: 20150923
  Transmission Date: 20151125
  Serious: Yes (Death, Other)
  Sender: FDA-Public Use
  Company Number: TR-009507513-1509TUR010578

PATIENT
  Age: 27 Year
  Sex: Female

DRUGS (1)
  1. ESMERON [Suspect]
     Active Substance: ROCURONIUM BROMIDE
     Indication: COMPLETED SUICIDE
     Dosage: 1 VIAL
     Route: 042

REACTIONS (2)
  - Off label use [Fatal]
  - Respiratory arrest [Fatal]
